FAERS Safety Report 11732712 (Version 1)
Quarter: 2015Q4

REPORT INFORMATION
  Report Type: Spontaneous
  Country: US (occurrence: US)
  Receive Date: 20151110
  Receipt Date: 20151110
  Transmission Date: 20160304
  Serious: No
  Sender: FDA-Public Use
  Company Number: US-ELI_LILLY_AND_COMPANY-US201109005015

PATIENT
  Sex: Female

DRUGS (2)
  1. FORTEO [Suspect]
     Active Substance: TERIPARATIDE
     Indication: OSTEOPOROSIS
     Dosage: 20 UG, QD
     Dates: start: 201106
  2. FORTEO [Suspect]
     Active Substance: TERIPARATIDE
     Dosage: 20 UG, QD

REACTIONS (9)
  - Dry skin [Unknown]
  - Bone pain [Unknown]
  - Pain in extremity [Unknown]
  - Alopecia [Unknown]
  - Depression [Unknown]
  - Muscular weakness [Unknown]
  - Thyroid disorder [Unknown]
  - Mobility decreased [Unknown]
  - Arthralgia [Unknown]
